FAERS Safety Report 16433067 (Version 1)
Quarter: 2019Q2

REPORT INFORMATION
  Report Type: Report from Study
  Country: FR (occurrence: FR)
  Receive Date: 20190614
  Receipt Date: 20190614
  Transmission Date: 20190711
  Serious: Yes (Hospitalization, Other)
  Sender: FDA-Public Use
  Company Number: FR-PURDUE-GBR-2019-0067245

PATIENT
  Age: 67 Year
  Sex: Female

DRUGS (26)
  1. OXYNORM [Suspect]
     Active Substance: OXYCODONE HYDROCHLORIDE
     Indication: PRODUCT USED FOR UNKNOWN INDICATION
     Dosage: UNK
     Route: 065
  2. ESCITALOPRAM [Concomitant]
     Active Substance: ESCITALOPRAM OXALATE
     Indication: ANXIETY
     Dosage: UNK, DAILY (30 (UNSPECIFIED UNIT), DAILY)
     Dates: end: 20171217
  3. MACROGOL [Concomitant]
     Active Substance: POLYETHYLENE GLYCOLS
     Dosage: UNK (30 (UNSPECIFIED UNIT), DAILY)
  4. ALPRAZOLAM. [Concomitant]
     Active Substance: ALPRAZOLAM
     Indication: ANXIETY
     Dosage: UNK UNK, DAILY (0.25 (UNKNOWN UNIT), DAILY)
     Dates: end: 20171229
  5. DOLIPRANE [Concomitant]
     Active Substance: ACETAMINOPHEN
     Indication: PAIN
     Dosage: UNK, DAILY (3000 (UNSPECIFIED UNIT), DAILY)
  6. EPREX [Concomitant]
     Active Substance: ERYTHROPOIETIN
     Dosage: UNK, DAILY (4000 (UNSPECIFIED UNIT), DAILY)
  7. AMOXICILLIN                        /00249602/ [Concomitant]
     Active Substance: AMOXICILLIN
     Dosage: UNK UNK, DAILY (2 (UNSPECIFIED UNIT), DAILY)
     Route: 048
     Dates: start: 20171011, end: 201711
  8. RIFAMPICIN [Concomitant]
     Active Substance: RIFAMPIN
     Indication: OSTEITIS
     Dosage: UNK UNK, DAILY (1200 (UNSPECIFIED UNIT), DAILY)
     Dates: start: 20170915, end: 20171217
  9. OXYNORMORO [Concomitant]
     Active Substance: OXYCODONE HYDROCHLORIDE
     Indication: PAIN IN EXTREMITY
     Dosage: UNK
     Dates: start: 201705
  10. OXYCONTIN [Concomitant]
     Active Substance: OXYCODONE HYDROCHLORIDE
     Indication: PAIN IN EXTREMITY
     Dosage: UNK, DAILY
     Dates: start: 201705
  11. ESOMEPRAZOLE. [Concomitant]
     Active Substance: ESOMEPRAZOLE MAGNESIUM
     Indication: GASTROOESOPHAGEAL REFLUX DISEASE
     Dosage: UNK UNK, DAILY
  12. XARELTO [Concomitant]
     Active Substance: RIVAROXABAN
     Indication: ATRIAL FIBRILLATION
     Dosage: UNK, DAILY
     Dates: start: 20170725
  13. BOSUTINIB [Suspect]
     Active Substance: BOSUTINIB
     Indication: CHRONIC MYELOID LEUKAEMIA
     Dosage: 300 MG, DAILY
     Route: 048
     Dates: start: 20170914, end: 20180702
  14. BOSUTINIB [Suspect]
     Active Substance: BOSUTINIB
     Dosage: 300 MG, DAILY
     Route: 065
     Dates: start: 20180816
  15. TARDYFERON [Concomitant]
     Active Substance: FERROUS SULFATE
     Indication: ANXIETY
     Dosage: UNK, DAILY (160 (UNSPECIFIED UNIT), DAILY)
     Dates: end: 20171217
  16. FOLIC ACID. [Concomitant]
     Active Substance: FOLIC ACID
     Dosage: UNK, DAILY (5 (UNSPECIFIED UNIT), DAILY)
     Dates: end: 20171217
  17. PREGABALIN. [Concomitant]
     Active Substance: PREGABALIN
     Indication: PAIN
     Dosage: UNK, DAILY (75 (UNSPECIFIED UNIT), DAILY)
     Dates: start: 20171228
  18. PREGABALIN. [Concomitant]
     Active Substance: PREGABALIN
     Dosage: UNK UNK, DAILY (UNK; 50 (UNIT UNSPECIFIED))
     Dates: start: 20171229
  19. LEVOTHYROX [Concomitant]
     Active Substance: LEVOTHYROXINE
     Indication: HYPOTHYROIDISM
     Dosage: UNK, DAILY (50 (UNSPECIFIED UNIT), DAILY)
     Dates: start: 20010619
  20. GLICLAZIDE [Concomitant]
     Active Substance: GLICLAZIDE
     Indication: DIABETES MELLITUS
     Dosage: UNK UNK, DAILY (30 (UNSPECIFIED UNIT), DAILY)
     Dates: start: 20160204
  21. AMOXICILLIN                        /00249602/ [Concomitant]
     Active Substance: AMOXICILLIN
     Indication: OSTEITIS
     Dosage: UNK UNK, DAILY (8 (UNSPECIFIED UNIT), DAILY)
     Dates: start: 20170727, end: 20171010
  22. ACUPAN [Concomitant]
     Active Substance: NEFOPAM HYDROCHLORIDE
     Indication: PAIN
     Dosage: UNK, DAILY (60 (UNSPECIFIED UNIT), DAILY)
     Dates: start: 20170928, end: 20171217
  23. SULFAMETHOXAZOLE W/TRIMETHOPRIM [Concomitant]
     Active Substance: SULFAMETHOXAZOLE\TRIMETHOPRIM
     Indication: OSTEITIS
     Dosage: UNK (2400 (UNSPECIFIED UNIT AND FREQUENCY))
     Dates: start: 20170821, end: 20171217
  24. NICARDIPINE HYDROCHLORIDE. [Concomitant]
     Active Substance: NICARDIPINE HYDROCHLORIDE
     Dosage: UNK UNK, DAILY (100 (UNSPECIFIED UNIT), DAILY)
  25. JANUVIA [Concomitant]
     Active Substance: SITAGLIPTIN PHOSPHATE
     Dosage: UNK, DAILY (100 (UNSPECIFIED UNIT), DAILY)
  26. KARDEGIC [Concomitant]
     Active Substance: ASPIRIN DL-LYSINE
     Dosage: UNK UNK, DAILY (75 (UNSPECIFIED UNIT), DAILY)

REACTIONS (22)
  - Thrombocytopenia [Recovered/Resolved]
  - Pleural effusion [Recovered/Resolved]
  - Oedema peripheral [Recovered/Resolved]
  - Dermatitis [Recovered/Resolved]
  - Staphylococcal infection [Recovered/Resolved]
  - Escherichia infection [Recovered/Resolved]
  - Blood creatinine increased [Not Recovered/Not Resolved]
  - Vulvovaginal mycotic infection [Recovered/Resolved]
  - Limb injury [Recovered/Resolved]
  - Klebsiella infection [Recovered/Resolved]
  - Vomiting [Recovered/Resolved]
  - Left ventricular failure [Recovered/Resolved]
  - Intertrigo [Recovered/Resolved]
  - Pyrexia [Recovered/Resolved]
  - Nausea [Recovered/Resolved]
  - Haemorrhoids [Recovered/Resolved]
  - Limb injury [Recovered/Resolved]
  - Acute respiratory distress syndrome [Recovered/Resolved]
  - Urinary tract infection bacterial [Recovered/Resolved]
  - Bacterial infection [Recovered/Resolved]
  - Somnolence [Recovered/Resolved]
  - Depression [Not Recovered/Not Resolved]

NARRATIVE: CASE EVENT DATE: 20171031
